FAERS Safety Report 16134142 (Version 4)
Quarter: 2021Q1

REPORT INFORMATION
  Report Type: Other
  Country: CA (occurrence: CA)
  Receive Date: 20190329
  Receipt Date: 20210317
  Transmission Date: 20210419
  Serious: Yes (Other)
  Sender: FDA-Public Use
  Company Number: CA-APOTEX-2019AP010124

PATIENT
  Age: 61 Year
  Sex: Male

DRUGS (5)
  1. ADVAIR HFA [Suspect]
     Active Substance: FLUTICASONE PROPIONATE\SALMETEROL XINAFOATE
     Indication: PRODUCT USED FOR UNKNOWN INDICATION
     Dosage: 1 DOSAGE FORM, BID
     Route: 065
  2. APO?SALVENT AEM 100MCG [Suspect]
     Active Substance: ALBUTEROL
     Indication: PRODUCT USED FOR UNKNOWN INDICATION
     Dosage: UNK
     Route: 050
  3. APO?SALVENT AEM 100MCG [Suspect]
     Active Substance: ALBUTEROL
     Dosage: UNK
     Route: 065
  4. ADVAIR HFA [Suspect]
     Active Substance: FLUTICASONE PROPIONATE\SALMETEROL XINAFOATE
     Dosage: 2 DF, BID
     Route: 065
  5. PREDNISONE. [Concomitant]
     Active Substance: PREDNISONE
     Indication: PRODUCT USED FOR UNKNOWN INDICATION
     Dosage: UNK
     Route: 016

REACTIONS (11)
  - Sinusitis [Unknown]
  - Sputum culture [Unknown]
  - Asthma [Unknown]
  - Tracheitis [Unknown]
  - Blood count abnormal [Unknown]
  - Sleep apnoea syndrome [Unknown]
  - Bronchiectasis [Unknown]
  - Obstructive airways disorder [Unknown]
  - Wheezing [Unknown]
  - Sputum abnormal [Unknown]
  - Therapeutic response decreased [Unknown]
